FAERS Safety Report 9890454 (Version 1)
Quarter: 2014Q1

REPORT INFORMATION
  Report Type: Spontaneous
  Country: US (occurrence: None)
  Receive Date: 20140210
  Receipt Date: 20140210
  Transmission Date: 20141002
  Serious: Yes (Other)
  Sender: FDA-Public Use
  Company Number: None

PATIENT
  Age: 57 Year
  Sex: Female
  Weight: 76.2 kg

DRUGS (2)
  1. ACETAMINOPHEN/TRAMADOL [Suspect]
     Indication: RADICULOPATHY
     Route: 048
     Dates: start: 2008
  2. ACETAMINOPHEN/TRAMADOL [Suspect]
     Indication: NEURALGIA
     Route: 048
     Dates: start: 2008

REACTIONS (1)
  - Adverse reaction [None]
